FAERS Safety Report 4772703-0 (Version None)
Quarter: 2005Q3

REPORT INFORMATION
  Report Type: 
  Country: None (occurrence: None)
  Receive Date: 20050915
  Receipt Date: 20050915
  Transmission Date: 20060218
  Serious: Yes (Hospitalization)
  Sender: FDA-Public Use
  Company Number: None

PATIENT
  Age: 75 Year
  Sex: Female
  Weight: 118 kg

DRUGS (11)
  1. MORPHINE [Suspect]
     Indication: PAIN
     Dosage: 1 MG IV OTO
     Route: 042
     Dates: start: 20050602
  2. NITROGLYCERIN [Suspect]
     Indication: ANGIOPATHY
     Dosage: 0.4MG SL OTO
     Route: 060
     Dates: start: 20050602
  3. NEURONTIN [Concomitant]
  4. POTASSIUM CHLORIDE [Concomitant]
  5. PLAVIX [Concomitant]
  6. DIOVAN [Concomitant]
  7. HYDROCHLOROTHIAZIDE [Concomitant]
  8. LIPITOR [Concomitant]
  9. NITROGLYCERIN [Concomitant]
  10. LANTUS [Concomitant]
  11. MORPHINE [Concomitant]

REACTIONS (6)
  - DRUG HYPERSENSITIVITY [None]
  - HYPERHIDROSIS [None]
  - HYPOTENSION [None]
  - HYPOXIA [None]
  - SHOCK [None]
  - TACHYCARDIA [None]
